FAERS Safety Report 10196584 (Version 1)
Quarter: 2014Q2

REPORT INFORMATION
  Report Type: Spontaneous
  Country: US (occurrence: US)
  Receive Date: 20140527
  Receipt Date: 20140527
  Transmission Date: 20141212
  Serious: Yes (Death, Congenital Anomaly)
  Sender: FDA-Public Use
  Company Number: US-UCBSA-122763

PATIENT
  Sex: Female

DRUGS (10)
  1. CIMZIA [Suspect]
     Indication: ANKYLOSING SPONDYLITIS
     Dosage: 200MG QOW
     Route: 064
     Dates: start: 20130827, end: 20131026
  2. ALPRAZOLAM [Concomitant]
     Route: 064
  3. AMLODIPINE BESYLATE [Concomitant]
     Route: 064
  4. PROMETHAZINE [Concomitant]
     Indication: NAUSEA
     Dosage: AS REQUIRED
     Route: 064
  5. ADDERALL [Concomitant]
     Indication: CONVULSION
     Route: 064
  6. NORCO [Concomitant]
     Route: 064
  7. FLEXERIL [Concomitant]
     Route: 064
  8. HYDROCODONE-ACETAMINOPHEN [Concomitant]
     Dosage: 5-325MG
     Route: 064
  9. ZOFRAN [Concomitant]
     Dosage: AS REQUIRED
     Route: 064
  10. PLAQUENIL [Concomitant]
     Route: 064

REACTIONS (2)
  - Foetal chromosome abnormality [Fatal]
  - Foetal exposure during pregnancy [Recovered/Resolved]
